FAERS Safety Report 4385530-3 (Version None)
Quarter: 2004Q2

REPORT INFORMATION
  Report Type: 
  Country: None (occurrence: None)
  Receive Date: 20040622
  Receipt Date: 20040607
  Transmission Date: 20050107
  Serious: Yes (Hospitalization)
  Sender: FDA-Public Use
  Company Number: 207019

PATIENT
  Age: 77 Year
  Sex: Male
  Weight: 75 kg

DRUGS (13)
  1. RAPTIVA [Suspect]
     Indication: PSORIASIS
     Dosage: 1 MG/KG, 1/WEEK, SUBCUTANEOUS
     Route: 058
     Dates: start: 20040212, end: 20040429
  2. CARVEDILOL [Concomitant]
  3. SIMVASTATIN [Concomitant]
  4. TOFRANIL [Concomitant]
  5. OXYBUTYNIN (OXYBUTYNIN CHLORIDE) [Concomitant]
  6. DOVONEX [Concomitant]
  7. FLUOCINONIDE [Concomitant]
  8. CIPRODEX (DEXAMETHASONE, CIPROFLOXACIN) [Concomitant]
  9. POLY-NEO-CORT (POLYMYXIN B SULFATE, NEOMYCIN SULFATE, HYDROCORTISONE) [Concomitant]
  10. CLINDAMYCIN HCL [Concomitant]
  11. LEVOFLOXACIN [Concomitant]
  12. ASCRIPTIN (CALCIUM CARBONATE, MAGNESIUM HYDROXIDE, ASPIRIN, ALUMINUM H [Concomitant]
  13. RHINOCORT [Concomitant]

REACTIONS (5)
  - FATIGUE [None]
  - HAEMATURIA [None]
  - HAEMOLYTIC ANAEMIA [None]
  - JAUNDICE [None]
  - SYNCOPE [None]
